FAERS Safety Report 6411905-4 (Version None)
Quarter: 2009Q4

REPORT INFORMATION
  Report Type: 
  Country: None (occurrence: None)
  Receive Date: 20091023
  Receipt Date: 20091014
  Transmission Date: 20100525
  Serious: Yes (Hospitalization)
  Sender: FDA-Public Use
  Company Number: FR-PFIZER INC-2009217553

PATIENT
  Age: 55 Year

DRUGS (1)
  1. SALAZOPYRIN [Suspect]
     Indication: POLYARTHRITIS
     Dosage: UNK
     Route: 048
     Dates: start: 20090401, end: 20090430

REACTIONS (1)
  - DRUG RASH WITH EOSINOPHILIA AND SYSTEMIC SYMPTOMS [None]
